FAERS Safety Report 9593230 (Version 1)
Quarter: 2013Q3

REPORT INFORMATION
  Report Type: Spontaneous
  Country: US (occurrence: None)
  Receive Date: 20130930
  Receipt Date: 20130930
  Transmission Date: 20140515
  Serious: No
  Sender: FDA-Public Use
  Company Number: 1000046777

PATIENT
  Age: 69 Year
  Sex: Male

DRUGS (1)
  1. LINZESS (LINACLOTIDE) (145 MICROGRAM, CAPSULES) [Suspect]
     Indication: IRRITABLE BOWEL SYNDROME
     Dosage: 145 MCG  (145 MCG, 1 IN 1 D), ORAL
     Route: 048
     Dates: start: 20130712

REACTIONS (2)
  - Pollakiuria [None]
  - Blood pressure decreased [None]
